FAERS Safety Report 5733475-6 (Version None)
Quarter: 2008Q2

REPORT INFORMATION
  Report Type: 
  Country: None (occurrence: None)
  Receive Date: 20080509
  Receipt Date: 20080507
  Transmission Date: 20081010
  Serious: Yes (Life-Threatening)
  Sender: FDA-Public Use
  Company Number: US-MERCK-0804USA04736

PATIENT
  Age: 8 Year
  Sex: Male
  Weight: 46 kg

DRUGS (3)
  1. SINGULAIR [Suspect]
     Indication: ASTHMA
     Route: 048
     Dates: start: 20080403, end: 20080418
  2. SINGULAIR [Suspect]
     Route: 048
  3. ALBUTEROL [Concomitant]
     Route: 065

REACTIONS (4)
  - DEPRESSION [None]
  - FIGHT IN SCHOOL [None]
  - INSOMNIA [None]
  - SUICIDAL IDEATION [None]
